FAERS Safety Report 13699367 (Version 4)
Quarter: 2017Q3

REPORT INFORMATION
  Report Type: Report from Study
  Country: US (occurrence: US)
  Receive Date: 20170628
  Receipt Date: 20170721
  Transmission Date: 20171127
  Serious: No
  Sender: FDA-Public Use
  Company Number: US-AMGEN-USASP2017096108

PATIENT
  Age: 28 Year
  Sex: Male

DRUGS (3)
  1. PLAQUENIL [Suspect]
     Active Substance: HYDROXYCHLOROQUINE SULFATE
     Indication: PRODUCT USED FOR UNKNOWN INDICATION
     Dosage: UNK
     Route: 065
  2. ENBREL [Suspect]
     Active Substance: ETANERCEPT
     Indication: RHEUMATOID ARTHRITIS
     Dosage: 50 MG, QWK
     Route: 065
     Dates: start: 20170621
  3. NEXIUM [Concomitant]
     Active Substance: ESOMEPRAZOLE MAGNESIUM

REACTIONS (10)
  - Joint warmth [Unknown]
  - Erythema [Unknown]
  - Inflammation [Unknown]
  - Pruritus [Unknown]
  - Dry skin [Unknown]
  - Skin irritation [Unknown]
  - Irritable bowel syndrome [Unknown]
  - Arthropathy [Unknown]
  - Tenderness [Unknown]
  - Feeling hot [Unknown]

NARRATIVE: CASE EVENT DATE: 201706
